FAERS Safety Report 19798394 (Version 2)
Quarter: 2021Q3

REPORT INFORMATION
  Report Type: Spontaneous
  Country: US (occurrence: US)
  Receive Date: 20210907
  Receipt Date: 20210930
  Transmission Date: 20211014
  Serious: Yes (Hospitalization, Other)
  Sender: FDA-Public Use
  Company Number: US-BAYER-2021-205971

PATIENT
  Age: 75 Year
  Sex: Female

DRUGS (3)
  1. OMEPRAZOLE. [Suspect]
     Active Substance: OMEPRAZOLE
     Indication: GASTROOESOPHAGEAL REFLUX DISEASE
     Dosage: UNK
  2. ALUMINIUM HYDROXID [ALUMINIUM HYDROXIDE;MAGNESIUM HYDROXIDE] [Suspect]
     Active Substance: ALUMINUM HYDROXIDE\MAGNESIUM HYDROXIDE
     Indication: DYSPEPSIA
  3. CALCIUM CARBONATE. [Suspect]
     Active Substance: CALCIUM CARBONATE
     Indication: OSTEOPOROSIS

REACTIONS (6)
  - Hypercalcaemia [Recovered/Resolved]
  - Milk-alkali syndrome [Recovering/Resolving]
  - Renal impairment [Recovering/Resolving]
  - Product use issue [Recovering/Resolving]
  - Metabolic alkalosis [Recovered/Resolved]
  - Labelled drug-drug interaction medication error [None]
